FAERS Safety Report 9110069 (Version 2)
Quarter: 2013Q1

REPORT INFORMATION
  Report Type: Report from Study
  Country: US (occurrence: US)
  Receive Date: 20130222
  Receipt Date: 20130304
  Transmission Date: 20140127
  Serious: Yes (Hospitalization)
  Sender: FDA-Public Use
  Company Number: US-BAYER-2013-020340

PATIENT
  Age: 70 Year
  Sex: Male
  Weight: 88.89 kg

DRUGS (10)
  1. REGORAFENIB [Suspect]
     Indication: GASTROINTESTINAL STROMAL TUMOUR
     Dosage: 80 MG
     Route: 048
     Dates: start: 20130211, end: 20130212
  2. AMLODIPINE W/BENAZEPRIL [Concomitant]
     Indication: HYPERTENSION
     Dosage: TOTAL DAILY DOSE 5 MG/10 MG
     Route: 048
     Dates: start: 20110909
  3. CLONIDINE [Concomitant]
     Indication: ROUTINE HEALTH MAINTENANCE
     Dosage: TOTAL DAILY DOSE 0.2 MG
     Route: 062
     Dates: start: 20110915
  4. OMEPRAZOLE [Concomitant]
     Indication: GASTROOESOPHAGEAL REFLUX DISEASE
     Dosage: TOTAL DAILY DOSE 20 MG
     Route: 048
     Dates: start: 20110214
  5. LEVOTHYROXINE [Concomitant]
     Indication: HYPOTHYROIDISM
     Dosage: TOTAL DAILY DOSE 75 MCG
     Route: 048
     Dates: start: 20121026
  6. ADVAIR [Concomitant]
     Indication: DYSPNOEA
     Dosage: TOTAL DAILY DOSE 250/50 MCG INHALATION
     Dates: start: 201301
  7. ALBUTEROL [Concomitant]
     Indication: DYSPNOEA
     Dosage: UNK
     Route: 048
     Dates: start: 201301
  8. BACTRIM [Concomitant]
     Indication: RESPIRATORY DISORDER
     Dosage: UNK UNK, BID
     Route: 048
     Dates: start: 201301, end: 20130212
  9. BACTRIM [Concomitant]
     Indication: SINUSITIS
  10. HEPARIN [Concomitant]
     Indication: THROMBOSIS PROPHYLAXIS
     Dosage: UNK
     Route: 058
     Dates: start: 20130212

REACTIONS (1)
  - Dyspnoea [Recovered/Resolved with Sequelae]
